FAERS Safety Report 23343581 (Version 5)
Quarter: 2024Q2

REPORT INFORMATION
  Report Type: Spontaneous
  Country: BE (occurrence: BE)
  Receive Date: 20231227
  Receipt Date: 20240523
  Transmission Date: 20240716
  Serious: Yes (Hospitalization, Other)
  Sender: FDA-Public Use
  Company Number: BE-GILEAD-2023-0648392

PATIENT
  Sex: Male
  Weight: 65.7 kg

DRUGS (26)
  1. CARBOPLATIN [Suspect]
     Active Substance: CARBOPLATIN
     Indication: Non-small cell lung cancer metastatic
     Dosage: 791 MG
     Route: 042
     Dates: start: 20231013, end: 20231013
  2. CARBOPLATIN [Suspect]
     Active Substance: CARBOPLATIN
     Dosage: 791 MG
     Route: 042
     Dates: start: 20231110, end: 20231110
  3. PEMBROLIZUMAB [Suspect]
     Active Substance: PEMBROLIZUMAB
     Indication: Non-small cell lung cancer metastatic
     Dosage: 200 MG
     Route: 042
     Dates: start: 20231013, end: 20231013
  4. PEMBROLIZUMAB [Suspect]
     Active Substance: PEMBROLIZUMAB
     Dosage: 200 MG
     Route: 042
     Dates: start: 20231110, end: 20231110
  5. PEMBROLIZUMAB [Suspect]
     Active Substance: PEMBROLIZUMAB
     Dosage: 200 MG
     Route: 042
     Dates: start: 20231215, end: 20231215
  6. PEMBROLIZUMAB [Suspect]
     Active Substance: PEMBROLIZUMAB
     Dosage: 200 MG
     Route: 042
     Dates: start: 20240112, end: 20240112
  7. PEMETREXED [Suspect]
     Active Substance: PEMETREXED
     Indication: Non-small cell lung cancer metastatic
     Dosage: 905 MG
     Route: 042
     Dates: start: 20231013, end: 20231013
  8. PEMETREXED [Suspect]
     Active Substance: PEMETREXED
     Dosage: 905 MG
     Route: 042
     Dates: start: 20231110, end: 20231110
  9. PIPERACILLIN SODIUM\TAZOBACTAM SODIUM [Concomitant]
     Active Substance: PIPERACILLIN SODIUM\TAZOBACTAM SODIUM
     Indication: Pneumonia
     Dosage: UNK
     Route: 042
     Dates: start: 20231026
  10. XGEVA [Concomitant]
     Active Substance: DENOSUMAB
     Indication: Prophylaxis
     Dosage: UNK
     Route: 058
     Dates: start: 20230925
  11. PRIMPERAN [Concomitant]
     Active Substance: METOCLOPRAMIDE HYDROCHLORIDE
     Dosage: UNK
     Route: 048
     Dates: start: 20231014
  12. MUCODOX [ERDOSTEINE] [Concomitant]
     Indication: Pneumonia
     Dosage: UNK
     Route: 048
     Dates: start: 20231020
  13. MORPHINE SULFATE [Concomitant]
     Active Substance: MORPHINE SULFATE
     Dosage: UNK
     Route: 048
     Dates: start: 20231006
  14. VITAMINE B12 STEROP [Concomitant]
     Indication: Premedication
     Dosage: UNK
     Route: 058
     Dates: start: 20230926
  15. AMOXICILLIN\CLAVULANATE POTASSIUM [Concomitant]
     Active Substance: AMOXICILLIN\CLAVULANATE POTASSIUM
     Indication: Pneumonia
     Dosage: UNK
     Route: 042
     Dates: start: 20231020, end: 20231022
  16. COMBIVENT [Concomitant]
     Active Substance: ALBUTEROL SULFATE\IPRATROPIUM BROMIDE
     Indication: Pneumonia
     Dosage: UNK
     Route: 048
     Dates: start: 20231020
  17. ENOXAPARIN SODIUM [Concomitant]
     Active Substance: ENOXAPARIN SODIUM
     Indication: Pneumonia
     Dosage: UNK
     Route: 058
     Dates: start: 20231020
  18. CALCIUM CARBONATE\CHOLECALCIFEROL [Concomitant]
     Active Substance: CALCIUM CARBONATE\CHOLECALCIFEROL
     Indication: Prophylaxis
     Dosage: UNK
     Route: 048
     Dates: start: 20230925
  19. METHYLPREDNISOLONE [Concomitant]
     Active Substance: METHYLPREDNISOLONE
     Indication: Premedication
     Dosage: UNK
     Route: 048
     Dates: start: 20231012
  20. ACETAMINOPHEN [Concomitant]
     Active Substance: ACETAMINOPHEN
     Dosage: UNK
     Route: 048
  21. FOLIC ACID [Concomitant]
     Active Substance: FOLIC ACID
     Indication: Premedication
     Dosage: UNK
     Route: 048
     Dates: start: 20230926
  22. MS CONTIN [Concomitant]
     Active Substance: MORPHINE SULFATE
     Dosage: UNK
     Route: 048
     Dates: start: 20231006
  23. MEDROL [Concomitant]
     Active Substance: METHYLPREDNISOLONE
     Indication: Premedication
     Dosage: UNK
     Route: 048
     Dates: start: 20231012
  24. LIDOCAINE [Concomitant]
     Active Substance: LIDOCAINE
     Dosage: UNK
  25. BISACODYL [Concomitant]
     Active Substance: BISACODYL
     Dosage: UNK
  26. SULFAMETHOXAZOLE\TRIMETHOPRIM [Concomitant]
     Active Substance: SULFAMETHOXAZOLE\TRIMETHOPRIM
     Dosage: UNK

REACTIONS (21)
  - Pneumonia [Recovered/Resolved]
  - Anaemia [Recovering/Resolving]
  - Neutrophil count decreased [Recovered/Resolved]
  - White blood cell count increased [Unknown]
  - Lymphocyte count increased [Unknown]
  - Serum ferritin increased [Unknown]
  - Basophil count increased [Unknown]
  - Blood alkaline phosphatase increased [Unknown]
  - Blood creatinine decreased [Unknown]
  - Blood glucose increased [Unknown]
  - Blood lactate dehydrogenase increased [Unknown]
  - Blood phosphorus decreased [Unknown]
  - Blood potassium decreased [Unknown]
  - C-reactive protein increased [Unknown]
  - Eosinophil count decreased [Unknown]
  - Gamma-glutamyltransferase increased [Unknown]
  - Monocyte count increased [Unknown]
  - Platelet count increased [Unknown]
  - Procalcitonin increased [Unknown]
  - Red blood cell count decreased [Unknown]
  - Inflammation [Recovered/Resolved]

NARRATIVE: CASE EVENT DATE: 20231020
